FAERS Safety Report 6599335-6 (Version None)
Quarter: 2010Q1

REPORT INFORMATION
  Report Type: 
  Country: None (occurrence: None)
  Receive Date: 20100224
  Receipt Date: 20100218
  Transmission Date: 20100710
  Serious: Yes (Hospitalization)
  Sender: FDA-Public Use
  Company Number: JP-ELI_LILLY_AND_COMPANY-JP201002005649

PATIENT

DRUGS (2)
  1. GEMCITABINE HCL [Suspect]
     Indication: PANCREATIC CARCINOMA NON-RESECTABLE
     Route: 042
     Dates: start: 20100106, end: 20100203
  2. BLINDED THERAPY [Suspect]
     Indication: PANCREATIC CARCINOMA NON-RESECTABLE
     Route: 058
     Dates: start: 20100106, end: 20100203

REACTIONS (1)
  - PULMONARY EMBOLISM [None]
